FAERS Safety Report 16088202 (Version 1)
Quarter: 2019Q1

REPORT INFORMATION
  Report Type: Spontaneous
  Country: US (occurrence: US)
  Receive Date: 20190318
  Receipt Date: 20190318
  Transmission Date: 20190418
  Serious: Yes (Other)
  Sender: FDA-Public Use
  Company Number: None

PATIENT
  Age: 40 Year
  Sex: Female
  Weight: 76.5 kg

DRUGS (2)
  1. XOFLUZA [Suspect]
     Active Substance: BALOXAVIR MARBOXIL
     Indication: INFLUENZA
     Dosage: ?          QUANTITY:2 TABLET(S);?
     Route: 048
     Dates: start: 20190225, end: 20190225
  2. NORTRELL [Concomitant]

REACTIONS (4)
  - Muscle spasms [None]
  - Rectal discharge [None]
  - Rectal haemorrhage [None]
  - Abdominal pain [None]

NARRATIVE: CASE EVENT DATE: 20190226
